FAERS Safety Report 12204454 (Version 2)
Quarter: 2016Q4

REPORT INFORMATION
  Report Type: Other
  Country: FR (occurrence: FR)
  Receive Date: 20160323
  Receipt Date: 20161020
  Transmission Date: 20170207
  Serious: Yes (Other)
  Sender: FDA-Public Use
  Company Number: FR-ASTELLAS-2016US010570

PATIENT
  Age: 27 Year
  Sex: Male

DRUGS (5)
  1. ANCOTIL [Concomitant]
     Active Substance: FLUCYTOSINE
     Dosage: UNK UNK, UNKNOWN FREQ.
     Route: 065
     Dates: start: 20151218, end: 20160104
  2. AMBISOME [Suspect]
     Active Substance: AMPHOTERICIN B
     Indication: SYSTEMIC MYCOSIS
     Route: 042
     Dates: start: 20150807, end: 20150819
  3. AMBISOME [Suspect]
     Active Substance: AMPHOTERICIN B
     Route: 042
     Dates: start: 20150820, end: 20150910
  4. AMBISOME [Suspect]
     Active Substance: AMPHOTERICIN B
     Route: 042
     Dates: start: 20150911, end: 20151005
  5. ANCOTIL [Concomitant]
     Active Substance: FLUCYTOSINE
     Indication: PRODUCT USED FOR UNKNOWN INDICATION
     Route: 065
     Dates: start: 20150819, end: 20151002

REACTIONS (4)
  - Hypokalaemia [Recovered/Resolved]
  - Renal tubular disorder [Recovered/Resolved]
  - Off label use [Recovered/Resolved]
  - Polyuria [Recovered/Resolved]

NARRATIVE: CASE EVENT DATE: 20150820
